FAERS Safety Report 9203783 (Version 1)
Quarter: 2013Q1

REPORT INFORMATION
  Report Type: Spontaneous
  Country: US (occurrence: None)
  Receive Date: 20120709
  Receipt Date: 20120709
  Transmission Date: 20140127
  Serious: Yes (Other)
  Sender: FDA-Public Use
  Company Number: PHEH2011US011972

PATIENT
  Age: 65 Year
  Sex: Male

DRUGS (2)
  1. GLEEVEC (IMATINIB) [Suspect]
     Indication: GASTROINTESTINAL DISORDER
     Route: 048
     Dates: start: 20110617
  2. GLEEVEC [Suspect]

REACTIONS (5)
  - Neutropenia [None]
  - White blood cell count decreased [None]
  - Blood pressure increased [None]
  - Lymphocyte count decreased [None]
  - Eosinophil count increased [None]
